FAERS Safety Report 6968477-5 (Version None)
Quarter: 2010Q3

REPORT INFORMATION
  Report Type: 
  Country: None (occurrence: None)
  Receive Date: 20100907
  Receipt Date: 20100901
  Transmission Date: 20110219
  Serious: Yes (Hospitalization)
  Sender: FDA-Public Use
  Company Number: PHHO2010US13388

PATIENT
  Sex: Male
  Weight: 85.714 kg

DRUGS (10)
  1. AFINITOR [Suspect]
     Indication: METASTATIC MALIGNANT MELANOMA
     Dosage: UNK
     Route: 048
     Dates: start: 20100602, end: 20100808
  2. PACLITAXEL [Suspect]
     Indication: METASTATIC MALIGNANT MELANOMA
     Dosage: UNK
     Dates: start: 20100602, end: 20100803
  3. CARBOPLATIN [Suspect]
     Indication: METASTATIC MALIGNANT MELANOMA
     Dosage: UNK
     Dates: start: 20100602, end: 20100803
  4. VERAPAMIL HCL [Concomitant]
  5. LASIX [Concomitant]
  6. ESOMEPRAZOLE MAGNESIUM [Concomitant]
  7. COLCHICINE [Concomitant]
  8. POTASSIUM CHLORIDE [Concomitant]
  9. ALLOPURINOL [Concomitant]
  10. ALBUMIN (HUMAN) [Concomitant]

REACTIONS (8)
  - ANAEMIA [None]
  - ARTERIOVENOUS MALFORMATION [None]
  - GASTRIC HAEMORRHAGE [None]
  - HAEMATEMESIS [None]
  - HIATUS HERNIA [None]
  - NAUSEA [None]
  - SMALL INTESTINAL OBSTRUCTION [None]
  - THROMBOCYTOPENIA [None]
